FAERS Safety Report 19444118 (Version 1)
Quarter: 2021Q2

REPORT INFORMATION
  Report Type: Spontaneous
  Country: HU (occurrence: HU)
  Receive Date: 20210621
  Receipt Date: 20210621
  Transmission Date: 20210717
  Serious: Yes (Other)
  Sender: FDA-Public Use
  Company Number: HU-BAYER-2021-159216

PATIENT
  Age: 67 Year
  Sex: Male

DRUGS (2)
  1. SORAFENIB (RAF KINASE INHIBITOR) [Suspect]
     Active Substance: SORAFENIB
     Indication: HEPATOCELLULAR CARCINOMA
     Dosage: 400 MG, BID
     Dates: start: 201604, end: 201606
  2. SORAFENIB (RAF KINASE INHIBITOR) [Suspect]
     Active Substance: SORAFENIB
     Indication: HEPATOCELLULAR CARCINOMA
     Dosage: 400 MG, QD
     Dates: start: 201608

REACTIONS (4)
  - Alpha 1 foetoprotein increased [Not Recovered/Not Resolved]
  - Acute myocardial infarction [None]
  - Hepatocellular carcinoma [Not Recovered/Not Resolved]
  - Metastases to adrenals [Not Recovered/Not Resolved]

NARRATIVE: CASE EVENT DATE: 201606
